FAERS Safety Report 9250783 (Version 1)
Quarter: 2013Q1

REPORT INFORMATION
  Report Type: Spontaneous
  Country: US (occurrence: None)
  Receive Date: 20130305
  Receipt Date: 20130305
  Transmission Date: 20140127
  Serious: Yes (Other)
  Sender: FDA-Public Use
  Company Number: 163-21880-12062020 (0)

PATIENT
  Age: 86 Year
  Sex: Female
  Weight: 47.17 kg

DRUGS (18)
  1. REVLIMID (LENALIDOMIDE) (CAPSULES) [Suspect]
     Indication: PLASMA CELL MYELOMA
     Dosage: 25 MG, QD X 21 DAYS, OFF 7 DAYS,
     Dates: start: 20110628
  2. BENAZEPRIL [Concomitant]
  3. LIPITOR (ATORVASTATIN) [Concomitant]
  4. CLONOPIN (CLONAZEPAM) [Concomitant]
  5. CALCITONIN [Concomitant]
  6. PAXIL (PAROXETINE HYDROCHLORIDE) [Concomitant]
  7. REGLAN (METOCLOPRAMIDE) [Concomitant]
  8. PRILOSEC [Concomitant]
  9. NEURONTIN (GABAPENTIN) [Concomitant]
  10. MVI (MVI) [Concomitant]
  11. VITAMIN C [Concomitant]
  12. CIPRO (CIPROFLOXACIN) [Concomitant]
  13. DMS (DEXAMETHASONE) [Concomitant]
  14. DIOVAN (VALSARTAN) [Concomitant]
  15. HCTZ (HYDROCHLOROTHIAZIDE) [Concomitant]
  16. LISINOPRIL [Concomitant]
  17. AMOXICILLIN [Concomitant]
  18. MEDROL (METHYLPREDNISOLONE) [Concomitant]

REACTIONS (2)
  - Swelling face [None]
  - Oedema peripheral [None]
